FAERS Safety Report 23533710 (Version 1)
Quarter: 2024Q1

REPORT INFORMATION
  Report Type: Spontaneous
  Country: CA (occurrence: CA)
  Receive Date: 20240216
  Receipt Date: 20240216
  Transmission Date: 20240410
  Serious: Yes (Other)
  Sender: FDA-Public Use
  Company Number: CA-ORGANON-O2402CAN001693

PATIENT

DRUGS (2)
  1. PROPECIA [Suspect]
     Active Substance: FINASTERIDE
     Indication: Alopecia
     Dosage: UNK, QD
     Route: 048
     Dates: start: 199706, end: 201307
  2. PROSCAR [Suspect]
     Active Substance: FINASTERIDE
     Indication: Alopecia
     Dosage: UNK, QD
     Route: 048
     Dates: start: 199706, end: 201307

REACTIONS (14)
  - Erectile dysfunction [Unknown]
  - Major depression [Recovered/Resolved]
  - Sexual dysfunction [Unknown]
  - Libido decreased [Unknown]
  - Ejaculation disorder [Unknown]
  - Semen volume decreased [Unknown]
  - Gynaecomastia [Unknown]
  - Testicular pain [Unknown]
  - Penis disorder [Unknown]
  - Prostatic disorder [Unknown]
  - Loss of libido [Unknown]
  - Anhedonia [Unknown]
  - Depression [Recovered/Resolved]
  - Orgasmic sensation decreased [Unknown]

NARRATIVE: CASE EVENT DATE: 20050101
